FAERS Safety Report 17798229 (Version 1)
Quarter: 2020Q2

REPORT INFORMATION
  Report Type: Spontaneous
  Country: PL (occurrence: PL)
  Receive Date: 20200518
  Receipt Date: 20200518
  Transmission Date: 20200714
  Serious: Yes (Other)
  Sender: FDA-Public Use
  Company Number: PL-TEVA-2020-PL-1235777

PATIENT
  Age: 82 Year
  Weight: 66 kg

DRUGS (3)
  1. CALCIUM FOLINATE [Suspect]
     Active Substance: LEUCOVORIN CALCIUM
     Indication: SMALL INTESTINE CARCINOMA
     Dosage: DOSE: 170
     Route: 042
     Dates: start: 20170719, end: 20170804
  2. 5-FLUOROURACIL [Suspect]
     Active Substance: FLUOROURACIL
     Indication: SMALL INTESTINE CARCINOMA
     Dosage: DOSE: 1400
     Route: 042
     Dates: start: 20170719, end: 20170804
  3. OXALIPLATIN. [Suspect]
     Active Substance: OXALIPLATIN
     Indication: SMALL INTESTINE CARCINOMA
     Dosage: DOSE: 100
     Route: 042
     Dates: start: 20170719, end: 20170803

REACTIONS (1)
  - Neutropenia [Unknown]
